FAERS Safety Report 15839557 (Version 1)
Quarter: 2019Q1

REPORT INFORMATION
  Report Type: Spontaneous
  Country: US (occurrence: US)
  Receive Date: 20190117
  Receipt Date: 20190117
  Transmission Date: 20190417
  Serious: Yes (Other)
  Sender: FDA-Public Use
  Company Number: US-REGENERON PHARMACEUTICALS, INC.-2018-15206

PATIENT

DRUGS (2)
  1. EYLEA [Suspect]
     Active Substance: AFLIBERCEPT
     Dosage: 2 MG, EVERY 6 WEEKS
     Route: 031
     Dates: start: 20180109, end: 20180109
  2. EYLEA [Suspect]
     Active Substance: AFLIBERCEPT
     Indication: NEOVASCULAR AGE-RELATED MACULAR DEGENERATION
     Dosage: 2 MG, EVERY 6 WEEKS
     Route: 031
     Dates: start: 201612

REACTIONS (1)
  - Vitritis [Unknown]

NARRATIVE: CASE EVENT DATE: 20180115
